FAERS Safety Report 13227832 (Version 1)
Quarter: 2017Q1

REPORT INFORMATION
  Report Type: Spontaneous
  Country: FR (occurrence: FR)
  Receive Date: 20170213
  Receipt Date: 20170213
  Transmission Date: 20170428
  Serious: Yes (Life-Threatening, Hospitalization)
  Sender: FDA-Public Use
  Company Number: FR-MYLANLABS-2017M1008280

PATIENT

DRUGS (2)
  1. OMEPRAZOLE. [Suspect]
     Active Substance: OMEPRAZOLE
     Indication: ABDOMINAL PAIN UPPER
     Dosage: 1 DF, QD
     Route: 048
     Dates: start: 20130201, end: 20130217
  2. PINAVERIUM BIPHAR 100 MG, COMPRIM? PELLICUL? [Suspect]
     Active Substance: PINAVERIUM BROMIDE
     Indication: DYSPNOEA
     Dosage: UNK
     Route: 048
     Dates: start: 20130201, end: 20130216

REACTIONS (5)
  - Face oedema [Recovered/Resolved]
  - Vomiting [Recovered/Resolved]
  - Abdominal pain [Recovered/Resolved]
  - Erythema [Recovered/Resolved]
  - Feeling hot [Recovered/Resolved]

NARRATIVE: CASE EVENT DATE: 20130218
